FAERS Safety Report 8107495-0 (Version None)
Quarter: 2012Q1

REPORT INFORMATION
  Report Type: 
  Country: None (occurrence: None)
  Receive Date: 20120202
  Receipt Date: 20120129
  Transmission Date: 20120608
  Serious: Yes (Death, Other)
  Sender: FDA-Public Use
  Company Number: US-SANOFI-AVENTIS-2012SA006120

PATIENT
  Sex: Male

DRUGS (2)
  1. SOLOSTAR [Suspect]
  2. LANTUS [Suspect]
     Route: 065

REACTIONS (4)
  - RENAL FAILURE [None]
  - ASBESTOSIS [None]
  - CARDIAC FAILURE CONGESTIVE [None]
  - LIVER INJURY [None]
